FAERS Safety Report 25125859 (Version 2)
Quarter: 2025Q1

REPORT INFORMATION
  Report Type: Report from Study
  Country: US (occurrence: US)
  Receive Date: 20250326
  Receipt Date: 20250331
  Transmission Date: 20250408
  Serious: Yes (Death, Other)
  Sender: BAUSCH AND LOMB
  Company Number: US-BAUSCH-BL-2025-004120

PATIENT
  Age: 81 Year
  Sex: Male

DRUGS (1)
  1. XIFAXAN [Suspect]
     Active Substance: RIFAXIMIN
     Indication: Product used for unknown indication
     Route: 048

REACTIONS (3)
  - Hepatic failure [Fatal]
  - Renal failure [Fatal]
  - Lower limb fracture [Unknown]

NARRATIVE: CASE EVENT DATE: 20250228
